FAERS Safety Report 9637714 (Version 1)
Quarter: 2013Q4

REPORT INFORMATION
  Report Type: Spontaneous
  Country: BR (occurrence: BR)
  Receive Date: 20131022
  Receipt Date: 20131022
  Transmission Date: 20140711
  Serious: Yes (Other)
  Sender: FDA-Public Use
  Company Number: BR-BAYER-2013-125218

PATIENT
  Age: 33 Year
  Sex: Female

DRUGS (2)
  1. PRIMOVIST [Suspect]
     Indication: NUCLEAR MAGNETIC RESONANCE IMAGING
     Dosage: UNK
     Route: 042
     Dates: start: 20131014, end: 20131014
  2. PRIMOVIST [Suspect]
     Indication: LIVER INJURY

REACTIONS (2)
  - Petechiae [Recovered/Resolved]
  - Flushing [Recovered/Resolved]
